FAERS Safety Report 9778226 (Version 1)
Quarter: 2013Q4

REPORT INFORMATION
  Report Type: Spontaneous
  Country: DE (occurrence: DE)
  Receive Date: 20131223
  Receipt Date: 20131223
  Transmission Date: 20140711
  Serious: Yes (Hospitalization, Congenital Anomaly, Other)
  Sender: FDA-Public Use
  Company Number: GXKR2013DE003854

PATIENT
  Sex: 0

DRUGS (3)
  1. VENLAFAXINE [Suspect]
     Indication: DEPRESSION
     Dosage: MATERNAL DOSE 225-150-0 MG/D
     Route: 064
  2. SEROQUEL [Suspect]
     Dosage: MATERNAL DOSE 300 MG/D
     Route: 064
  3. ELONTRIL [Suspect]
     Dosage: MATERNAL DOSE 300 MG/D
     Route: 064

REACTIONS (5)
  - Neonatal respiratory distress syndrome [Recovered/Resolved]
  - Feeding disorder neonatal [Recovered/Resolved]
  - Small for dates baby [Recovering/Resolving]
  - Oxygen saturation decreased [Recovered/Resolved]
  - Atrial septal defect [Unknown]
